FAERS Safety Report 15590088 (Version 1)
Quarter: 2018Q4

REPORT INFORMATION
  Report Type: Other
  Country: None (occurrence: US)
  Receive Date: 20181106
  Receipt Date: 20181106
  Transmission Date: 20190205
  Serious: Yes (Hospitalization)
  Sender: FDA-Public Use
  Company Number: US-ACORDA-ACO_155022_2018

PATIENT
  Sex: Male

DRUGS (1)
  1. AMPYRA [Suspect]
     Active Substance: DALFAMPRIDINE
     Indication: MULTIPLE SCLEROSIS
     Dosage: UNK
     Route: 065

REACTIONS (3)
  - Adverse drug reaction [Unknown]
  - Urinary tract infection [Unknown]
  - Heart rate irregular [Unknown]
